FAERS Safety Report 21310774 (Version 1)
Quarter: 2022Q3

REPORT INFORMATION
  Report Type: Spontaneous
  Country: CN (occurrence: None)
  Receive Date: 20220909
  Receipt Date: 20220909
  Transmission Date: 20221027
  Serious: Yes (Other)
  Sender: FDA-Public Use
  Company Number: CN-ROCHE-3175219

PATIENT
  Age: 70 Year
  Sex: Female

DRUGS (10)
  1. RITUXIMAB [Suspect]
     Active Substance: RITUXIMAB
     Indication: Follicular lymphoma
     Dosage: RCCOP (RITUXIMAB, CYCLOPHOSPHAMIDE, PEGYLATED LIPOSOMAL DOXORUBICIN, VINCRISTINE, PREDNISONE)  REGIM
     Route: 065
  2. RITUXIMAB [Suspect]
     Active Substance: RITUXIMAB
     Indication: Diffuse large B-cell lymphoma
  3. OBINUTUZUMAB [Suspect]
     Active Substance: OBINUTUZUMAB
     Indication: Diffuse large B-cell lymphoma
     Dosage: R2 (RITUXIMAB, LENALIDOMIDE) REGIMEN, LAST TREATMENT 10 JUN 2021.
     Route: 065
  4. CYCLOPHOSPHAMIDE [Concomitant]
     Active Substance: CYCLOPHOSPHAMIDE
     Indication: Follicular lymphoma
     Dosage: RCCOP (RITUXIMAB, CYCLOPHOSPHAMIDE, PEGYLATED LIPOSOMAL DOXORUBICIN, VINCRISTINE, PREDNISONE)  REGIM
  5. DOXORUBICIN HYDROCHLORIDE [Concomitant]
     Active Substance: DOXORUBICIN HYDROCHLORIDE
     Indication: Follicular lymphoma
     Dosage: RCCOP (RITUXIMAB, CYCLOPHOSPHAMIDE, PEGYLATED LIPOSOMAL DOXORUBICIN, VINCRISTINE,?PREDNISONE) REGIME
  6. VINCRISTINE [Concomitant]
     Active Substance: VINCRISTINE
     Indication: Follicular lymphoma
     Dosage: RCCOP (RITUXIMAB, CYCLOPHOSPHAMIDE, PEGYLATED LIPOSOMAL DOXORUBICIN, VINCRISTINE,?PREDNISONE) REGIME
  7. PREDNISONE [Concomitant]
     Active Substance: PREDNISONE
     Indication: Follicular lymphoma
     Dosage: RCCOP (RITUXIMAB, CYCLOPHOSPHAMIDE, PEGYLATED LIPOSOMAL DOXORUBICIN, VINCRISTINE,?PREDNISONE) REGIME
  8. ENTECAVIR [Concomitant]
     Active Substance: ENTECAVIR
     Indication: Hepatitis B
  9. LENALIDOMIDE [Concomitant]
     Active Substance: LENALIDOMIDE
     Indication: Diffuse large B-cell lymphoma
     Dosage: R2 (RITUXIMAB, LENALIDOMIDE) REGIMEN, LAST TREATMENT 10 JUN 2021?INTERMITTENT MAINTENANCE THERAPY
  10. ORELABRUTINIB [Concomitant]
     Active Substance: ORELABRUTINIB
     Indication: Diffuse large B-cell lymphoma
     Dosage: LAST TREATMENT WAS AUGUST 2022.

REACTIONS (3)
  - Pneumonia [Recovering/Resolving]
  - Off label use [Unknown]
  - Lymphoma transformation [Unknown]
